FAERS Safety Report 25416619 (Version 1)
Quarter: 2025Q2

REPORT INFORMATION
  Report Type: Spontaneous
  Country: US (occurrence: US)
  Receive Date: 20250610
  Receipt Date: 20250610
  Transmission Date: 20250717
  Serious: Yes (Other)
  Sender: GLAND PHARMA LTD
  Company Number: US-GLANDPHARMA-US-2025GLNLIT01344

PATIENT
  Age: 57 Year
  Sex: Male

DRUGS (13)
  1. GEMCITABINE [Suspect]
     Active Substance: GEMCITABINE
     Indication: Acinar cell carcinoma of pancreas
     Route: 065
     Dates: start: 2021
  2. OXALIPLATIN [Suspect]
     Active Substance: OXALIPLATIN
     Indication: Acinar cell carcinoma of pancreas
     Route: 065
     Dates: start: 2021
  3. CARBOPLATIN [Suspect]
     Active Substance: CARBOPLATIN
     Indication: Acinar cell carcinoma of pancreas
     Route: 065
  4. FLUOROURACIL [Suspect]
     Active Substance: FLUOROURACIL
     Indication: Acinar cell carcinoma of pancreas
     Route: 065
     Dates: start: 2021
  5. LEUCOVORIN [Suspect]
     Active Substance: LEUCOVORIN\LEUCOVORIN CALCIUM
     Indication: Acinar cell carcinoma of pancreas
     Route: 065
  6. ETOPOSIDE [Suspect]
     Active Substance: ETOPOSIDE
     Indication: Acinar cell carcinoma of pancreas
     Route: 065
  7. IPILIMUMAB [Suspect]
     Active Substance: IPILIMUMAB
     Indication: Acinar cell carcinoma of pancreas
     Route: 065
     Dates: start: 2022
  8. NIVOLUMAB [Suspect]
     Active Substance: NIVOLUMAB
     Indication: Acinar cell carcinoma of pancreas
     Route: 065
     Dates: start: 2022
  9. CAPECITABINE [Concomitant]
     Active Substance: CAPECITABINE
     Route: 065
  10. TEMOZOLOMIDE [Concomitant]
     Active Substance: TEMOZOLOMIDE
     Route: 065
  11. LAROTRECTINIB [Concomitant]
     Active Substance: LAROTRECTINIB
     Route: 065
  12. SELITRECTINIB [Concomitant]
     Active Substance: SELITRECTINIB
     Indication: Pancreatic neuroendocrine tumour
     Route: 065
  13. REPOTRECTINIB [Concomitant]
     Active Substance: REPOTRECTINIB
     Route: 065

REACTIONS (6)
  - Pulmonary embolism [Unknown]
  - Neuropathy peripheral [Unknown]
  - Fatigue [Unknown]
  - Rash [Unknown]
  - Nausea [Unknown]
  - Product use in unapproved indication [Unknown]
